FAERS Safety Report 18920945 (Version 3)
Quarter: 2021Q2

REPORT INFORMATION
  Report Type: Report from Study
  Country: CA (occurrence: CA)
  Receive Date: 20210222
  Receipt Date: 20210416
  Transmission Date: 20210717
  Serious: Yes (Other)
  Sender: FDA-Public Use
  Company Number: CA-JNJFOC-20210205674

PATIENT
  Age: 37 Year
  Sex: Female
  Weight: 56.2 kg

DRUGS (2)
  1. REMICADE [Suspect]
     Active Substance: INFLIXIMAB
     Indication: CROHN^S DISEASE
     Dosage: 10 MG/KG?ON 22?FEB?2021, THE PATIENT RECEIVED 40TH, 562 MILLIGRAMS INFLIXIMAB INFUSION AND PARTIAL H
     Route: 042
     Dates: start: 20170118
  2. REMICADE [Suspect]
     Active Substance: INFLIXIMAB
     Indication: COLITIS ULCERATIVE

REACTIONS (3)
  - SARS-CoV-2 test positive [Recovered/Resolved]
  - Product dose omission issue [Unknown]
  - Crohn^s disease [Recovered/Resolved]

NARRATIVE: CASE EVENT DATE: 20201118
